FAERS Safety Report 7074031-X (Version None)
Quarter: 2010Q4

REPORT INFORMATION
  Report Type: 
  Country: None (occurrence: None)
  Receive Date: 20101029
  Receipt Date: 20101018
  Transmission Date: 20110411
  Serious: Yes (Death, Hospitalization)
  Sender: FDA-Public Use
  Company Number: BR-ELI_LILLY_AND_COMPANY-BR201010004350

PATIENT
  Sex: Female
  Weight: 77 kg

DRUGS (8)
  1. FORTEO [Suspect]
     Indication: OSTEOPOROSIS
     Dosage: 20 UG, DAILY (1/D)
     Route: 058
     Dates: start: 20100701
  2. METFORMIN [Concomitant]
     Dosage: 500 MG, UNKNOWN
     Route: 065
  3. LOSARTAN [Concomitant]
     Dosage: 50 MG, UNKNOWN
     Route: 065
  4. RUBRANOVA [Concomitant]
     Dosage: 1500 MG, UNKNOWN
     Route: 065
  5. MELOXICAM [Concomitant]
     Dosage: 15 MG, UNKNOWN
     Route: 065
  6. BENZETACIL [Concomitant]
     Dosage: 1200 MG, UNKNOWN
     Route: 065
  7. PREDNISONA [Concomitant]
     Dosage: UNK, UNKNOWN
     Route: 065
  8. ACETYLCYSTEINE [Concomitant]
     Dosage: 600 MG, UNKNOWN
     Route: 065

REACTIONS (3)
  - DIABETES MELLITUS [None]
  - PNEUMONIA [None]
  - SEPTIC SHOCK [None]
